FAERS Safety Report 20906801 (Version 2)
Quarter: 2022Q2

REPORT INFORMATION
  Report Type: Spontaneous
  Country: JP (occurrence: JP)
  Receive Date: 20220602
  Receipt Date: 20220609
  Transmission Date: 20220720
  Serious: Yes (Other)
  Sender: FDA-Public Use
  Company Number: JP-CHUGAI-2022019621

PATIENT
  Age: 75 Year
  Sex: Female

DRUGS (7)
  1. ACTEMRA [Suspect]
     Active Substance: TOCILIZUMAB
     Indication: Rheumatoid arthritis
     Route: 041
  2. ACTEMRA [Suspect]
     Active Substance: TOCILIZUMAB
     Route: 041
     Dates: start: 20220518
  3. LIMAPROST [Suspect]
     Active Substance: LIMAPROST
     Indication: Product used for unknown indication
     Dosage: UNK
     Route: 048
  4. LIMAPROST [Suspect]
     Active Substance: LIMAPROST
     Dosage: UNK
     Route: 048
     Dates: start: 202205
  5. ALPROSTADIL [Suspect]
     Active Substance: ALPROSTADIL
     Indication: Product used for unknown indication
     Dosage: UNK
     Route: 041
  6. ALPROSTADIL [Suspect]
     Active Substance: ALPROSTADIL
     Dosage: UNK
     Route: 041
     Dates: start: 20220519
  7. METHOTREXATE [Concomitant]
     Active Substance: METHOTREXATE
     Dosage: UNK
     Route: 065

REACTIONS (2)
  - Haemorrhoids [Unknown]
  - Surgical skin tear [Unknown]

NARRATIVE: CASE EVENT DATE: 20220520
